FAERS Safety Report 23652014 (Version 3)
Quarter: 2024Q2

REPORT INFORMATION
  Report Type: Spontaneous
  Country: US (occurrence: US)
  Receive Date: 20240320
  Receipt Date: 20240401
  Transmission Date: 20240716
  Serious: No
  Sender: FDA-Public Use
  Company Number: US-GSK-US2024AMR033821

PATIENT
  Sex: Female

DRUGS (1)
  1. FLUTICASONE PROPIONATE\SALMETEROL XINAFOATE [Suspect]
     Active Substance: FLUTICASONE PROPIONATE\SALMETEROL XINAFOATE
     Indication: Product used for unknown indication
     Dosage: UNK (100/50 MCG, 60)

REACTIONS (10)
  - Throat irritation [Unknown]
  - Anxiety [Unknown]
  - Sleep disorder [Unknown]
  - Headache [Unknown]
  - Nausea [Unknown]
  - Hypersensitivity [Unknown]
  - Pharyngeal swelling [Unknown]
  - Swelling [Unknown]
  - Mouth swelling [Unknown]
  - Product complaint [Unknown]
